FAERS Safety Report 8691118 (Version 5)
Quarter: 2014Q1

REPORT INFORMATION
  Report Type: Report from Study
  Country: DE (occurrence: DE)
  Receive Date: 20120730
  Receipt Date: 20140125
  Transmission Date: 20141002
  Serious: Yes (Hospitalization)
  Sender: FDA-Public Use
  Company Number: DE-UCBSA-050888

PATIENT
  Sex: Female
  Weight: 160 kg

DRUGS (16)
  1. CERTOLIZUMAB PEGOL [Suspect]
     Indication: RHEUMATOID ARTHRITIS
     Route: 058
     Dates: start: 20120201, end: 20120711
  2. CERTOLIZUMAB PEGOL [Suspect]
     Indication: RHEUMATOID ARTHRITIS
     Dosage: NO OF DOSES RECEIVED :8
     Route: 058
     Dates: start: 20111020, end: 20111222
  3. PREDNISOLONE [Concomitant]
     Indication: RHEUMATOID ARTHRITIS
     Route: 048
     Dates: start: 201004
  4. PREDNISOLONE [Concomitant]
     Indication: RHEUMATOID ARTHRITIS
     Route: 048
     Dates: start: 201004, end: 20121101
  5. CALCIUM/VIT D [Concomitant]
     Indication: RHEUMATOID ARTHRITIS
     Route: 048
     Dates: start: 201004
  6. CALCIUM/VIT D [Concomitant]
     Indication: RHEUMATOID ARTHRITIS
     Dosage: 500.54/400MG/IU PER DAY
     Route: 048
     Dates: start: 201104, end: 20130821
  7. MTX [Concomitant]
     Indication: RHEUMATOID ARTHRITIS
     Route: 048
     Dates: start: 201004
  8. FOLSAN [Concomitant]
     Indication: RHEUMATOID ARTHRITIS
     Route: 048
     Dates: start: 201004
  9. CELEBREX [Concomitant]
     Indication: RHEUMATOID ARTHRITIS
     Dosage: 100  MG AS NEEDED
     Route: 048
     Dates: start: 201111
  10. CELEBREX [Concomitant]
     Indication: RHEUMATOID ARTHRITIS
     Dosage: 100 MG AS NEEDED
     Route: 048
     Dates: start: 20111103, end: 201209
  11. PANTOZOL [Concomitant]
     Indication: RHEUMATOID ARTHRITIS
     Route: 048
     Dates: start: 201112
  12. PANTOZOL [Concomitant]
     Indication: GASTRITIS
     Route: 048
     Dates: start: 201112
  13. PANTOZOL [Concomitant]
     Indication: RHEUMATOID ARTHRITIS
     Dates: start: 201112
  14. PANTOZOL [Concomitant]
     Indication: GASTRITIS
     Dates: start: 201112
  15. LOBOTRA [Concomitant]
     Indication: RHEUMATOID ARTHRITIS
     Route: 048
     Dates: start: 20111103
  16. IBUPROFEN [Concomitant]
     Indication: RHEUMATOID ARTHRITIS
     Dosage: 600 MG AS NEEDED
     Route: 048
     Dates: start: 201201

REACTIONS (2)
  - Foot deformity [Recovered/Resolved with Sequelae]
  - Genital abscess [Recovered/Resolved]
